FAERS Safety Report 8358482-9 (Version None)
Quarter: 2012Q2

REPORT INFORMATION
  Report Type: 
  Country: None (occurrence: None)
  Receive Date: 20120514
  Receipt Date: 20120507
  Transmission Date: 20120825
  Serious: Yes (Hospitalization, Other)
  Sender: FDA-Public Use
  Company Number: US-BAYER-2011-032243

PATIENT
  Age: 35 Year
  Sex: Female
  Weight: 76.644 kg

DRUGS (9)
  1. HYDROCODONE BITARTRATE + ACETAMINOPHEN [Concomitant]
     Indication: PAIN
     Dosage: UNK
     Dates: start: 20050204, end: 20100605
  2. YASMIN [Suspect]
     Indication: CONTRACEPTION
     Dosage: UNK, QD
     Route: 048
     Dates: start: 20050129, end: 20060307
  3. HYDROCODONE BITARTRATE + ACETAMINOPHEN [Concomitant]
     Dosage: UNK
     Dates: start: 20060117
  4. MECLIZINE [Concomitant]
     Indication: NAUSEA
     Dosage: UNK
     Dates: start: 20010719, end: 20090717
  5. PROMETHAZINE [Concomitant]
     Dosage: UNK
     Dates: start: 20060209
  6. PROMETHAZINE [Concomitant]
     Indication: NAUSEA
     Dosage: UNK
     Dates: start: 20050328, end: 20100801
  7. ALPRAZOLAM [Concomitant]
     Indication: ANXIETY
     Dosage: UNK
     Dates: start: 20060117, end: 20100701
  8. OXYCODONE HCL AND ACETAMINOPHEN [Concomitant]
     Indication: PAIN
     Dosage: UNK
     Dates: start: 20060213, end: 20070101
  9. CYCLOBENZAPRINE [Concomitant]
     Indication: MUSCLE RELAXANT THERAPY
     Dosage: UNK
     Dates: start: 20050103, end: 20100720

REACTIONS (11)
  - DYSPNOEA [None]
  - PAIN [None]
  - DEEP VEIN THROMBOSIS [None]
  - INJURY [None]
  - ANXIETY [None]
  - EMOTIONAL DISTRESS [None]
  - PAIN IN EXTREMITY [None]
  - PULMONARY EMBOLISM [None]
  - CHEST PAIN [None]
  - GENERAL PHYSICAL HEALTH DETERIORATION [None]
  - THROMBOPHLEBITIS SUPERFICIAL [None]
